FAERS Safety Report 22025064 (Version 2)
Quarter: 2023Q4

REPORT INFORMATION
  Report Type: Report from Study
  Country: US (occurrence: US)
  Receive Date: 20230223
  Receipt Date: 20231211
  Transmission Date: 20240109
  Serious: Yes (Hospitalization, Other)
  Sender: FDA-Public Use
  Company Number: US-SHIRE-US202032772

PATIENT
  Sex: Female

DRUGS (1)
  1. HUMAN IMMUNOGLOBULIN G [Suspect]
     Active Substance: HUMAN IMMUNOGLOBULIN G
     Indication: Immunodeficiency common variable
     Dosage: 20 GRAM, Q2WEEKS
     Route: 065

REACTIONS (11)
  - Compartment syndrome [Unknown]
  - Loss of consciousness [Unknown]
  - Fall [Unknown]
  - Therapeutic response shortened [Unknown]
  - Burns second degree [Unknown]
  - Injury [Unknown]
  - Victim of abuse [Unknown]
  - Gastritis [Unknown]
  - Gait inability [Unknown]
  - Asthma [Unknown]
  - Asthenia [Unknown]
